FAERS Safety Report 16256179 (Version 1)
Quarter: 2019Q2

REPORT INFORMATION
  Report Type: Spontaneous
  Country: US (occurrence: US)
  Receive Date: 20190430
  Receipt Date: 20190430
  Transmission Date: 20190711
  Serious: Yes (Death)
  Sender: FDA-Public Use
  Company Number: US-ROCHE-2309639

PATIENT
  Sex: Male

DRUGS (13)
  1. DILTIAZEM HCL [Concomitant]
     Active Substance: DILTIAZEM HYDROCHLORIDE
  2. HYDROCODONE [Concomitant]
     Active Substance: HYDROCODONE
  3. WARFARIN SODIUM. [Concomitant]
     Active Substance: WARFARIN SODIUM
  4. AMLODIPINE BESILATE [Concomitant]
     Active Substance: AMLODIPINE BESYLATE
  5. METOPROLOL SUCCINATE. [Concomitant]
     Active Substance: METOPROLOL SUCCINATE
  6. OMEPRAZOLE. [Concomitant]
     Active Substance: OMEPRAZOLE
  7. LUCENTIS [Suspect]
     Active Substance: RANIBIZUMAB
     Indication: END STAGE RENAL DISEASE
     Dosage: LEFT EYE EVERY 4 TO 6 WEEKS AS DIRECTED?0.3 MG 0.05 ML
     Route: 050
     Dates: start: 20180928
  8. AMIODARONE HCL [Concomitant]
     Active Substance: AMIODARONE HYDROCHLORIDE
  9. CALCITRIOL. [Concomitant]
     Active Substance: CALCITRIOL
  10. FUROSEMIDE. [Concomitant]
     Active Substance: FUROSEMIDE
  11. LOSARTAN POTASSIUM. [Concomitant]
     Active Substance: LOSARTAN POTASSIUM
  12. OXYCODONE [Concomitant]
     Active Substance: OXYCODONE
  13. PRAVASTATIN. [Concomitant]
     Active Substance: PRAVASTATIN
     Route: 065

REACTIONS (3)
  - Intentional product use issue [Unknown]
  - Off label use [Unknown]
  - Death [Fatal]
